APPROVED DRUG PRODUCT: CHOLBAM
Active Ingredient: CHOLIC ACID
Strength: 50MG
Dosage Form/Route: CAPSULE;ORAL
Application: N205750 | Product #001
Applicant: MIRUM PHARMACEUTICALS INC
Approved: Mar 17, 2015 | RLD: Yes | RS: No | Type: RX